FAERS Safety Report 8358462-3 (Version None)
Quarter: 2012Q2

REPORT INFORMATION
  Report Type: 
  Country: None (occurrence: None)
  Receive Date: 20120514
  Receipt Date: 20120508
  Transmission Date: 20120825
  Serious: Yes (Congenital Anomaly, Other)
  Sender: FDA-Public Use
  Company Number: PHHY2012DE039655

PATIENT

DRUGS (5)
  1. CELLCEPT [Suspect]
     Dosage: (MATERNAL DOSE: 1 G/DAY)
     Route: 064
  2. URSODIOL [Suspect]
     Route: 064
  3. CYCLOSPORINE [Suspect]
     Route: 064
  4. MYFORTIC [Suspect]
     Dosage: (MATERNAL DOSE: 1 G/DAY)
     Route: 064
  5. PREDNISONE [Suspect]
     Route: 064

REACTIONS (4)
  - FOETAL EXPOSURE DURING PREGNANCY [None]
  - ATRIAL SEPTAL DEFECT [None]
  - BRAIN MALFORMATION [None]
  - PREMATURE BABY [None]
